FAERS Safety Report 4816603-6 (Version None)
Quarter: 2005Q4

REPORT INFORMATION
  Report Type: 
  Country: None (occurrence: None)
  Receive Date: 20051028
  Receipt Date: 20051013
  Transmission Date: 20060501
  Serious: Yes (Death)
  Sender: FDA-Public Use
  Company Number: 2005S1010113

PATIENT
  Age: 55 Year
  Sex: Female

DRUGS (9)
  1. CLOZAPINE [Suspect]
     Dosage: 200 MG; HS; PO; 300 MG; HS; PO
     Route: 048
     Dates: start: 20050503, end: 20050808
  2. CLOZAPINE [Suspect]
     Dosage: 200 MG; HS; PO; 300 MG; HS; PO
     Route: 048
     Dates: start: 20050809, end: 20051001
  3. MORPHINE [Concomitant]
  4. VALPROATE SODIUM [Concomitant]
  5. BENZTROPINE MESYLATE [Concomitant]
  6. PARACETAMOL/DEXTROPROPOXYPHENE NAPSILATE [Concomitant]
  7. CYCLOBENZAPRINE HCL [Concomitant]
  8. ATENOLOL [Concomitant]
  9. LORAZEPAM [Concomitant]

REACTIONS (1)
  - DEATH [None]
